FAERS Safety Report 4318349-X (Version None)
Quarter: 2004Q1

REPORT INFORMATION
  Report Type: 
  Country: None (occurrence: None)
  Receive Date: 20040315
  Receipt Date: 20040220
  Transmission Date: 20041129
  Serious: Yes (Hospitalization)
  Sender: FDA-Public Use
  Company Number: A02200400584

PATIENT
  Age: 74 Year
  Sex: Male

DRUGS (4)
  1. KARDEGIC - (ACTYLSALICYLATE LYSINE) - POWDER - 160 MG [Suspect]
     Dosage: 160 MG QD
     Route: 048
     Dates: start: 20030308, end: 20031008
  2. PLAVIX [Suspect]
     Dosage: 75 MG OD
     Route: 048
     Dates: start: 20030308, end: 20030422
  3. PRAVASTATIN SODIUM [Suspect]
     Route: 048
     Dates: start: 20030308, end: 20030422
  4. BISOPROLOL FUMARATE [Suspect]
     Route: 048
     Dates: start: 20030308, end: 20030603

REACTIONS (15)
  - ANOREXIA [None]
  - ANTINUCLEAR ANTIBODY POSITIVE [None]
  - ASTHENIA [None]
  - DERMATITIS EXFOLIATIVE [None]
  - EOSINOPHILIA [None]
  - GENERAL PHYSICAL HEALTH DETERIORATION [None]
  - HYPERKERATOSIS PALMARIS AND PLANTARIS [None]
  - HYPERNATRAEMIA [None]
  - LYMPHADENOPATHY [None]
  - LYMPHOPENIA [None]
  - PARAPSORIASIS [None]
  - RASH PRURITIC [None]
  - SKIN OEDEMA [None]
  - TOXIC SKIN ERUPTION [None]
  - WEIGHT DECREASED [None]
